FAERS Safety Report 12689514 (Version 1)
Quarter: 2016Q3

REPORT INFORMATION
  Report Type: Report from Study
  Country: US (occurrence: US)
  Receive Date: 20160826
  Receipt Date: 20160826
  Transmission Date: 20161109
  Serious: Yes (Hospitalization)
  Sender: FDA-Public Use
  Company Number: US-VALIDUS PHARMACEUTICALS LLC-US-2013VAL000655

PATIENT

DRUGS (5)
  1. CALCITRIOL. [Suspect]
     Active Substance: CALCITRIOL
     Indication: PRODUCT USED FOR UNKNOWN INDICATION
     Dosage: 2 IN 1 D
  2. LEVOXYL [Concomitant]
     Active Substance: LEVOTHYROXINE SODIUM
     Indication: PRODUCT USED FOR UNKNOWN INDICATION
     Dosage: 25 ?G, UNK
  3. NUTROPIN AQ [Suspect]
     Active Substance: SOMATROPIN
     Indication: HYPOPITUITARISM
     Dosage: 0.8 MG,1 IN 1 D
     Route: 058
  4. NUTROPIN AQ [Suspect]
     Active Substance: SOMATROPIN
     Dosage: 1 MG,7 IN 1 WK
     Route: 058
  5. DDAVP [Concomitant]
     Active Substance: DESMOPRESSIN ACETATE
     Indication: PRODUCT USED FOR UNKNOWN INDICATION
     Dosage: 0.1 MG, UNK

REACTIONS (10)
  - Pollakiuria [Unknown]
  - Gait disturbance [Unknown]
  - Hypersensitivity [Not Recovered/Not Resolved]
  - Sleep apnoea syndrome [Unknown]
  - Balance disorder [Unknown]
  - Polydipsia [Unknown]
  - Polyuria [Unknown]
  - Myalgia [Unknown]
  - Asthenia [Unknown]
  - Pain in extremity [Unknown]

NARRATIVE: CASE EVENT DATE: 201308
